FAERS Safety Report 9542177 (Version 1)
Quarter: 2013Q2

REPORT INFORMATION
  Report Type: Spontaneous
  Country: US (occurrence: None)
  Receive Date: 20130524
  Receipt Date: 20130524
  Transmission Date: 20140414
  Serious: No
  Sender: FDA-Public Use
  Company Number: PHEH2013US003969

PATIENT
  Age: 58 Year
  Sex: Male

DRUGS (2)
  1. GILENYA (FINGOLIMOD) CAPSULE, 0.5MG [Suspect]
     Dosage: 0.5 MG, QD, ORAL
     Route: 048
  2. SIMVASTATIN (SIMVASTATIN) [Concomitant]

REACTIONS (1)
  - Hordeolum [None]
